FAERS Safety Report 13441905 (Version 1)
Quarter: 2017Q2

REPORT INFORMATION
  Report Type: Spontaneous
  Country: US (occurrence: US)
  Receive Date: 20170414
  Receipt Date: 20170414
  Transmission Date: 20170830
  Serious: Yes (Hospitalization)
  Sender: FDA-Public Use
  Company Number: US-ASTRAZENECA-2017SE37148

PATIENT
  Age: 57 Year
  Sex: Female
  Weight: 69.9 kg

DRUGS (4)
  1. SYMBICORT [Suspect]
     Active Substance: BUDESONIDE\FORMOTEROL FUMARATE DIHYDRATE
     Indication: CHRONIC OBSTRUCTIVE PULMONARY DISEASE
     Dosage: 160/4.5 UG, TWO PUFFS, TWO TIMES A DAY
     Route: 055
  2. ESCITALOPRAM [Concomitant]
     Active Substance: ESCITALOPRAM OXALATE
     Indication: DEPRESSION
     Route: 048
     Dates: start: 201702
  3. SYMBICORT [Suspect]
     Active Substance: BUDESONIDE\FORMOTEROL FUMARATE DIHYDRATE
     Indication: EMPHYSEMA
     Dosage: 160/4.5 UG, TWO PUFFS, TWO TIMES A DAY
     Route: 055
  4. XANAX [Concomitant]
     Active Substance: ALPRAZOLAM
     Indication: ANXIETY
     Dosage: 0.5MG AS REQUIRED
     Route: 048

REACTIONS (15)
  - Lung disorder [Not Recovered/Not Resolved]
  - Intervertebral disc disorder [Not Recovered/Not Resolved]
  - Drug effect decreased [Unknown]
  - Off label use [Unknown]
  - Cataract [Not Recovered/Not Resolved]
  - Dry mouth [Not Recovered/Not Resolved]
  - Product use issue [Unknown]
  - Incorrect product storage [Unknown]
  - Dyspnoea [Unknown]
  - Body height decreased [Unknown]
  - Device issue [Unknown]
  - Circumstance or information capable of leading to medication error [Unknown]
  - Chronic obstructive pulmonary disease [Not Recovered/Not Resolved]
  - Blood pressure increased [Unknown]
  - Depression [Not Recovered/Not Resolved]

NARRATIVE: CASE EVENT DATE: 2016
